FAERS Safety Report 8848631 (Version 1)
Quarter: 2012Q4

REPORT INFORMATION
  Report Type: Spontaneous
  Country: CA (occurrence: None)
  Receive Date: 20121015
  Receipt Date: 20121015
  Transmission Date: 20130627
  Serious: Yes (Other)
  Sender: FDA-Public Use
  Company Number: 2012000219

PATIENT
  Age: 54 Year
  Sex: Female

DRUGS (1)
  1. ACEON [Suspect]
     Indication: HYPERTENSION
     Route: 048
     Dates: start: 201202, end: 201202

REACTIONS (14)
  - Urinary retention [None]
  - Haematuria [None]
  - Disorientation [None]
  - Confusional state [None]
  - Lymphadenopathy [None]
  - Local swelling [None]
  - General physical health deterioration [None]
  - Non-cardiac chest pain [None]
  - Vomiting [None]
  - Swelling face [None]
  - Arthralgia [None]
  - Pyrexia [None]
  - Back pain [None]
  - Urticaria [None]
